FAERS Safety Report 13456373 (Version 2)
Quarter: 2017Q2

REPORT INFORMATION
  Report Type: Spontaneous
  Country: US (occurrence: US)
  Receive Date: 20170418
  Receipt Date: 20170621
  Transmission Date: 20170830
  Serious: Yes (Other)
  Sender: FDA-Public Use
  Company Number: GXBR2017US001400

PATIENT
  Age: 84 Year
  Sex: Female
  Weight: 72.56 kg

DRUGS (1)
  1. AZITHROMYCIN 250 MG [Suspect]
     Active Substance: AZITHROMYCIN ANHYDROUS
     Indication: PRODUCT USED FOR UNKNOWN INDICATION
     Dosage: 250 MG, UNK
     Route: 065
     Dates: start: 20170404, end: 20170408

REACTIONS (5)
  - Head injury [Unknown]
  - Amnesia [Not Recovered/Not Resolved]
  - Headache [Not Recovered/Not Resolved]
  - Loss of consciousness [Recovered/Resolved]
  - Buttock injury [Unknown]

NARRATIVE: CASE EVENT DATE: 20170406
